FAERS Safety Report 11445739 (Version 1)
Quarter: 2015Q3

REPORT INFORMATION
  Report Type: Spontaneous
  Country: US (occurrence: US)
  Receive Date: 20150902
  Receipt Date: 20150902
  Transmission Date: 20151125
  Serious: Yes (Other)
  Sender: FDA-Public Use
  Company Number: US-PFIZER INC-2015285493

PATIENT
  Age: 38 Year
  Sex: Male
  Weight: 84 kg

DRUGS (11)
  1. SYNTHROID [Suspect]
     Active Substance: LEVOTHYROXINE SODIUM
     Dosage: 175 ?G, 1X/DAY
     Dates: start: 20150518
  2. GABAPENTIN. [Suspect]
     Active Substance: GABAPENTIN
     Dosage: 300 MG, 4X/DAY
     Route: 048
     Dates: start: 20150713
  3. VITAMIN D [Concomitant]
     Active Substance: CHOLECALCIFEROL
     Dosage: 1000 IU, 3X/DAY
     Route: 048
     Dates: start: 20150819
  4. LANTUS SOLOSTAR [Concomitant]
     Active Substance: INSULIN GLARGINE
     Dosage: 30 IU, 2X/DAY (100 UNTI/ML)
     Route: 058
     Dates: start: 20150422
  5. LEVOTHYROXINE SODIUM. [Suspect]
     Active Substance: LEVOTHYROXINE SODIUM
     Dosage: 112 ?G, 1X/DAY
     Route: 048
     Dates: start: 20141124
  6. INSULIN GLARGINE [Concomitant]
     Active Substance: INSULIN GLARGINE
     Dosage: 15 IU, 2X/DAY (100 UNIT/ML)
     Route: 058
     Dates: start: 20141124
  7. ASPIRIN. [Suspect]
     Active Substance: ASPIRIN
     Dosage: 81 MG, 1X/DAY
     Route: 048
     Dates: start: 20141124
  8. HYDROCODONE BITARTRATE AND ACETAMINOPHEN [Suspect]
     Active Substance: ACETAMINOPHEN\HYDROCODONE BITARTRATE
     Dosage: [HYDROCODONE 5MG-ACETAMINOPHEN 325MG], 2X/DAY
     Route: 048
     Dates: start: 20150416
  9. VITAMIN D3 [Concomitant]
     Active Substance: CHOLECALCIFEROL
     Dosage: 1000 IU, 3X/DAY
     Route: 048
     Dates: start: 20150410
  10. LOSARTAN POTASSIUM. [Suspect]
     Active Substance: LOSARTAN POTASSIUM
     Dosage: 100 MG, 1X/DAY
     Route: 048
     Dates: start: 20150819
  11. INSULIN ASPART [Concomitant]
     Active Substance: INSULIN ASPART
     Dosage: 50 IU, 2X/DAY (100 UNIT/ML)
     Route: 058
     Dates: start: 20150518

REACTIONS (5)
  - Libido decreased [Unknown]
  - Hypothyroidism [Unknown]
  - Diabetes mellitus inadequate control [Unknown]
  - Erectile dysfunction [Unknown]
  - Essential hypertension [Unknown]

NARRATIVE: CASE EVENT DATE: 20150819
